FAERS Safety Report 12775528 (Version 3)
Quarter: 2016Q4

REPORT INFORMATION
  Report Type: Spontaneous
  Country: BE (occurrence: BE)
  Receive Date: 20160923
  Receipt Date: 20161024
  Transmission Date: 20170207
  Serious: Yes (Other)
  Sender: FDA-Public Use
  Company Number: PHHY2016BE128628

PATIENT
  Age: 11 Year
  Sex: Male

DRUGS (2)
  1. DESLORATADINE. [Suspect]
     Active Substance: DESLORATADINE
     Indication: SWOLLEN TONGUE
     Dosage: 10 ML, UNK
     Route: 048
  2. DESLORATADINE. [Suspect]
     Active Substance: DESLORATADINE
     Indication: HYPERSENSITIVITY

REACTIONS (2)
  - Toxicity to various agents [Recovered/Resolved]
  - Eye movement disorder [Recovered/Resolved]

NARRATIVE: CASE EVENT DATE: 201609
